FAERS Safety Report 22388061 (Version 1)
Quarter: 2023Q2

REPORT INFORMATION
  Report Type: Spontaneous
  Country: US (occurrence: None)
  Receive Date: 20230530
  Receipt Date: 20230530
  Transmission Date: 20230721
  Serious: No
  Sender: FDA-Public Use
  Company Number: None

PATIENT
  Sex: Male

DRUGS (22)
  1. CAPECITABINE [Suspect]
     Active Substance: CAPECITABINE
     Indication: Cholangiocarcinoma
     Dosage: OTHER QUANTITY : 3T 14D ON/7D OFF;?FREQUENCY : TWICE A DAY;?
     Route: 048
  2. AMMONIUM LACTATE [Concomitant]
     Active Substance: AMMONIUM LACTATE
  3. ZYRTEC [Concomitant]
     Active Substance: CETIRIZINE HYDROCHLORIDE
  4. EQL VITAMIN D3 [Concomitant]
  5. LOMOTIL [Concomitant]
  6. DOXEPIN [Concomitant]
  7. ULORIC [Concomitant]
     Active Substance: FEBUXOSTAT
  8. FINSTERIDE [Concomitant]
  9. HUMALOG [Concomitant]
     Active Substance: INSULIN LISPRO
  10. CVS PROBIOTIC [Concomitant]
  11. LIDOCAINE [Concomitant]
  12. CREON [Concomitant]
  13. IMODIUM [Concomitant]
     Active Substance: LOPERAMIDE HYDROCHLORIDE
  14. ATIVAN [Concomitant]
  15. MULTIVITAMIN [Concomitant]
  16. COMPLETE OMEGA [Concomitant]
  17. ZOFRAN [Concomitant]
  18. PANTOPRAZOLE [Concomitant]
  19. PROCHLORPERAZINE [Concomitant]
  20. SYSTANE (HYPROMELLOSE 2910 (4000 MPA.S)) [Concomitant]
     Active Substance: HYPROMELLOSE 2910 (4000 MPA.S)
  21. FLOMAX [Concomitant]
     Active Substance: TAMSULOSIN HYDROCHLORIDE
  22. PROTONIX [Concomitant]
     Active Substance: PANTOPRAZOLE SODIUM

REACTIONS (1)
  - Drug ineffective [None]
